FAERS Safety Report 9562907 (Version 2)
Quarter: 2013Q3

REPORT INFORMATION
  Report Type: Spontaneous
  Country: BR (occurrence: BR)
  Receive Date: 20130927
  Receipt Date: 20130927
  Transmission Date: 20140515
  Serious: Yes (Other)
  Sender: FDA-Public Use
  Company Number: BR-ASTRAZENECA-2013SE12673

PATIENT
  Age: 12772 Day
  Sex: Female

DRUGS (6)
  1. SYMBICORT TURBUHALER [Suspect]
     Indication: ASTHMA
     Dosage: 320/9MCG, FREQUENCY,BID
     Route: 055
     Dates: start: 201301
  2. BUDECORT AQUA [Suspect]
     Indication: RESPIRATORY DISORDER
     Route: 045
  3. BUDECORT AQUA [Suspect]
     Indication: RESPIRATORY DISORDER
     Route: 045
     Dates: start: 201301
  4. ENDOFOLIN [Suspect]
     Indication: HYPOVITAMINOSIS
     Route: 048
     Dates: end: 201303
  5. PROGESTERONE [Suspect]
     Route: 048
     Dates: end: 201303
  6. NATALE VITAMIN [Suspect]
     Indication: VITAMIN SUPPLEMENTATION
     Route: 048
     Dates: start: 201303

REACTIONS (2)
  - Exposure during pregnancy [Unknown]
  - Pre-eclampsia [Recovered/Resolved]
